FAERS Safety Report 17573546 (Version 1)
Quarter: 2020Q1

REPORT INFORMATION
  Report Type: Report from Study
  Country: US (occurrence: US)
  Receive Date: 20200323
  Receipt Date: 20200323
  Transmission Date: 20200409
  Serious: No
  Sender: FDA-Public Use
  Company Number: NVSC2020US077811

PATIENT
  Sex: Male

DRUGS (1)
  1. GILENYA [Suspect]
     Active Substance: FINGOLIMOD HYDROCHLORIDE
     Indication: MULTIPLE SCLEROSIS
     Dosage: 0.5 MG, QD
     Route: 048

REACTIONS (7)
  - Feeling abnormal [Unknown]
  - White blood cell count decreased [Unknown]
  - Memory impairment [Unknown]
  - Balance disorder [Unknown]
  - Gait disturbance [Unknown]
  - Influenza [Unknown]
  - Pyrexia [Unknown]
